FAERS Safety Report 7486241-8 (Version None)
Quarter: 2011Q2

REPORT INFORMATION
  Report Type: 
  Country: None (occurrence: None)
  Receive Date: 20110517
  Receipt Date: 20110218
  Transmission Date: 20111010
  Serious: No
  Sender: FDA-Public Use
  Company Number: A0915346A

PATIENT
  Sex: Female
  Weight: 44.1 kg

DRUGS (1)
  1. VOTRIENT [Suspect]
     Dosage: 400MGD PER DAY
     Route: 048
     Dates: start: 20110215

REACTIONS (12)
  - FATIGUE [None]
  - NAUSEA [None]
  - DECREASED APPETITE [None]
  - WEIGHT DECREASED [None]
  - DIARRHOEA [None]
  - DYSPHONIA [None]
  - VOMITING [None]
  - LETHARGY [None]
  - THROAT TIGHTNESS [None]
  - DIZZINESS [None]
  - PHARYNGEAL OEDEMA [None]
  - CONSTIPATION [None]
